FAERS Safety Report 17010279 (Version 1)
Quarter: 2019Q4

REPORT INFORMATION
  Report Type: Spontaneous
  Country: US (occurrence: US)
  Receive Date: 20191107
  Receipt Date: 20191107
  Transmission Date: 20200122
  Serious: Yes (Life-Threatening, Disabling, Other)
  Sender: FDA-Public Use
  Company Number: None

PATIENT
  Age: 68 Year
  Sex: Male
  Weight: 130.5 kg

DRUGS (3)
  1. METFORMIN [Concomitant]
     Active Substance: METFORMIN HYDROCHLORIDE
  2. ASTHMATIC INHALERS [Concomitant]
  3. METHOTREXATE. [Suspect]
     Active Substance: METHOTREXATE
     Indication: RHEUMATOID ARTHRITIS
     Dosage: INJECTION INTO STOMACH?
     Dates: start: 20171215

REACTIONS (7)
  - Chronic obstructive pulmonary disease [None]
  - Asthma [None]
  - Malaise [None]
  - Type 2 diabetes mellitus [None]
  - Near death experience [None]
  - Overdose [None]
  - Product dispensing error [None]

NARRATIVE: CASE EVENT DATE: 20171215
